FAERS Safety Report 4372261-9 (Version None)
Quarter: 2004Q2

REPORT INFORMATION
  Report Type: 
  Country: None (occurrence: None)
  Receive Date: 20040602
  Receipt Date: 20040602
  Transmission Date: 20050107
  Serious: Yes (Life-Threatening)
  Sender: FDA-Public Use
  Company Number: None

PATIENT
  Age: 63 Year
  Sex: Female

DRUGS (3)
  1. VIOXX [Suspect]
     Dosage: PRN
     Dates: start: 20040316, end: 20040322
  2. COZAAR [Suspect]
  3. SPIRONOLACTONE [Suspect]

REACTIONS (6)
  - DIABETIC NEPHROPATHY [None]
  - DIALYSIS [None]
  - DRUG TOXICITY [None]
  - ELECTROCARDIOGRAM CHANGE [None]
  - HYPOVOLAEMIA [None]
  - RENAL FAILURE ACUTE [None]
